FAERS Safety Report 4569592-6 (Version None)
Quarter: 2005Q1

REPORT INFORMATION
  Report Type: 
  Country: None (occurrence: None)
  Receive Date: 20050201
  Receipt Date: 20050128
  Transmission Date: 20050727
  Serious: Yes (Hospitalization)
  Sender: FDA-Public Use
  Company Number: 200412891GDS

PATIENT
  Age: 71 Year
  Sex: Male

DRUGS (2)
  1. ASPIRIN [Suspect]
     Indication: ATRIAL FIBRILLATION
     Dosage: 100 MG, TOTAL DAILY, ORAL
     Route: 048
  2. WARFARIN SODIUM [Suspect]
     Dosage: 2.5 MG, TOTAL DAILY,

REACTIONS (6)
  - ARTERIAL RUPTURE [None]
  - BRACHIAL PLEXUS LESION [None]
  - IATROGENIC INJURY [None]
  - PLATELET COUNT DECREASED [None]
  - PROCEDURAL COMPLICATION [None]
  - VASCULAR PSEUDOANEURYSM [None]
